FAERS Safety Report 15594047 (Version 1)
Quarter: 2018Q4

REPORT INFORMATION
  Report Type: Spontaneous
  Country: CN (occurrence: CN)
  Receive Date: 20181107
  Receipt Date: 20181107
  Transmission Date: 20190205
  Serious: Yes (Life-Threatening, Other)
  Sender: FDA-Public Use
  Company Number: CN-BAYER-2018-202195

PATIENT
  Age: 60 Year
  Sex: Female
  Weight: 65 kg

DRUGS (5)
  1. MEROPENEM. [Suspect]
     Active Substance: MEROPENEM
     Indication: CEREBRAL INFARCTION
     Dosage: 0.5 DF, BID
     Route: 042
     Dates: start: 20180919, end: 20180921
  2. KETOSTERIL [Concomitant]
     Active Substance: AMINO ACIDS
  3. CRESTOR [Suspect]
     Active Substance: ROSUVASTATIN CALCIUM
     Indication: CEREBRAL INFARCTION
     Dosage: 10 MG, QD
     Route: 048
     Dates: start: 20180917, end: 20180918
  4. BAYASPIRIN 100 MG [Suspect]
     Active Substance: ASPIRIN
     Indication: CEREBRAL INFARCTION
     Dosage: 0.1 G, QD
     Route: 048
     Dates: start: 20180917, end: 20180918
  5. PLAVIX [Suspect]
     Active Substance: CLOPIDOGREL BISULFATE
     Indication: CEREBRAL INFARCTION
     Dosage: 75 MG, QD
     Route: 048
     Dates: start: 20180917, end: 20180918

REACTIONS (2)
  - Platelet count decreased [Recovering/Resolving]
  - Hepatic lesion [Recovering/Resolving]

NARRATIVE: CASE EVENT DATE: 20180920
